FAERS Safety Report 19379435 (Version 1)
Quarter: 2021Q2

REPORT INFORMATION
  Report Type: Spontaneous
  Country: US (occurrence: US)
  Receive Date: 20210607
  Receipt Date: 20210607
  Transmission Date: 20210717
  Serious: Yes (Hospitalization, Other)
  Sender: FDA-Public Use
  Company Number: US-ROCHE-2839711

PATIENT
  Sex: Female
  Weight: 77.18 kg

DRUGS (2)
  1. CELLCEPT [Suspect]
     Active Substance: MYCOPHENOLATE MOFETIL\MYCOPHENOLATE MOFETIL HYDROCHLORIDE
     Indication: RELAPSING MULTIPLE SCLEROSIS
     Dosage: 3 OR 4 TIMES A DAY
     Route: 048
     Dates: start: 2017, end: 201801
  2. MYCOPHENOLATE MOFETIL. [Suspect]
     Active Substance: MYCOPHENOLATE MOFETIL
     Indication: RELAPSING MULTIPLE SCLEROSIS
     Route: 048
     Dates: start: 2017

REACTIONS (5)
  - Urinary tract infection [Unknown]
  - Neurogenic bladder [Unknown]
  - Drug ineffective [Unknown]
  - Kidney infection [Unknown]
  - Off label use [Unknown]

NARRATIVE: CASE EVENT DATE: 2017
